FAERS Safety Report 6522391-8 (Version None)
Quarter: 2009Q4

REPORT INFORMATION
  Report Type: 
  Country: None (occurrence: None)
  Receive Date: 20091229
  Receipt Date: 20091229
  Transmission Date: 20100525
  Serious: No
  Sender: FDA-Public Use
  Company Number: None

PATIENT
  Age: 80 Year
  Sex: Female
  Weight: 66.6788 kg

DRUGS (1)
  1. LEVAQUIN [Suspect]
     Indication: DIVERTICULITIS
     Dosage: 500 MG EVERY 24 HOURS IV
     Route: 042
     Dates: start: 20091225, end: 20091226

REACTIONS (5)
  - DRUG HYPERSENSITIVITY [None]
  - INFUSION RELATED REACTION [None]
  - INFUSION SITE ERYTHEMA [None]
  - INFUSION SITE RASH [None]
  - PRURITUS [None]
